FAERS Safety Report 4953981-1 (Version None)
Quarter: 2006Q1

REPORT INFORMATION
  Report Type: 
  Country: None (occurrence: None)
  Receive Date: 20060321
  Receipt Date: 20060316
  Transmission Date: 20060701
  Serious: Yes (Hospitalization)
  Sender: FDA-Public Use
  Company Number: STA-AE-06-021

PATIENT
  Age: 22 Year
  Sex: Female
  Weight: 75 kg

DRUGS (1)
  1. ATENOLOL [Suspect]
     Indication: LONG QT SYNDROME CONGENITAL
     Dosage: 50MG ONCE DAILY

REACTIONS (8)
  - ANAESTHETIC COMPLICATION [None]
  - ANXIETY [None]
  - CATHETER RELATED COMPLICATION [None]
  - DRUG EXPOSURE DURING PREGNANCY [None]
  - INADEQUATE ANALGESIA [None]
  - NERVOUSNESS [None]
  - PREMATURE LABOUR [None]
  - TREATMENT NONCOMPLIANCE [None]
